FAERS Safety Report 5851736-7 (Version None)
Quarter: 2008Q3

REPORT INFORMATION
  Report Type: 
  Country: None (occurrence: None)
  Receive Date: 20080820
  Receipt Date: 20080811
  Transmission Date: 20090109
  Serious: Yes (Hospitalization)
  Sender: FDA-Public Use
  Company Number: PHBS2008FR05412

PATIENT
  Age: 79 Year
  Sex: Female

DRUGS (4)
  1. PANTOPRAZOLE [Interacting]
     Indication: GASTRIC HAEMORRHAGE
     Dosage: 100 MG/DAY
  2. PANTOPRAZOLE [Interacting]
     Dosage: 40 MG/DAY
     Route: 042
  3. OCTREOTIDE ACETATE [Suspect]
     Indication: GASTRIC HAEMORRHAGE
     Dosage: 300 UG/DAY
     Route: 065
  4. COLESTYRAMINE [Interacting]
     Indication: PRURITUS
     Route: 065

REACTIONS (7)
  - ABDOMINAL DISTENSION [None]
  - BEZOAR [None]
  - COLOSTOMY [None]
  - CONSTIPATION [None]
  - DRUG INTERACTION [None]
  - FLATULENCE [None]
  - OBSTRUCTION [None]
